FAERS Safety Report 7016247-4 (Version None)
Quarter: 2010Q3

REPORT INFORMATION
  Report Type: 
  Country: None (occurrence: None)
  Receive Date: 20100927
  Receipt Date: 20100217
  Transmission Date: 20110219
  Serious: Yes (Other)
  Sender: FDA-Public Use
  Company Number: US-ASTRAZENECA-2010SE06943

PATIENT
  Age: 62 Year
  Sex: Female
  Weight: 81.6 kg

DRUGS (8)
  1. ARIMIDEX [Suspect]
     Indication: ENDOMETRIAL SARCOMA
     Route: 048
     Dates: start: 20090101, end: 20100201
  2. METOPROLOL TARTRATE [Concomitant]
     Route: 048
  3. LANTIS INSULIN [Concomitant]
     Route: 048
  4. ASPIRIN [Concomitant]
     Route: 048
  5. MAGNESIUM [Concomitant]
     Route: 048
  6. AMLODIPINE [Concomitant]
     Route: 048
  7. FLUCONAZOLE [Concomitant]
     Route: 048
  8. HUMALOG [Concomitant]
     Route: 048

REACTIONS (1)
  - MALIGNANT NEOPLASM PROGRESSION [None]
